FAERS Safety Report 25437590 (Version 1)
Quarter: 2025Q2

REPORT INFORMATION
  Report Type: Spontaneous
  Country: US (occurrence: US)
  Receive Date: 20250616
  Receipt Date: 20250616
  Transmission Date: 20250717
  Serious: Yes (Other)
  Sender: NOVO NORDISK
  Company Number: US-NOVOPROD-1453051

PATIENT
  Sex: Male

DRUGS (1)
  1. WEGOVY [Suspect]
     Active Substance: SEMAGLUTIDE
     Indication: Product used for unknown indication
     Dosage: 2.4 MG, QW
     Dates: start: 202505

REACTIONS (6)
  - Intervertebral disc protrusion [Unknown]
  - Piloerection [Unknown]
  - Pruritus [Unknown]
  - Pyrexia [Unknown]
  - Paraesthesia [Unknown]
  - Skin burning sensation [Unknown]
